FAERS Safety Report 20312471 (Version 1)
Quarter: 2022Q1

REPORT INFORMATION
  Report Type: Spontaneous
  Country: US (occurrence: None)
  Receive Date: 20220108
  Receipt Date: 20220108
  Transmission Date: 20220423
  Serious: Yes (Life-Threatening, Other)
  Sender: FDA-Public Use
  Company Number: None

PATIENT
  Age: 54 Year
  Sex: Male
  Weight: 114.4 kg

DRUGS (22)
  1. ACTEMRA [Suspect]
     Active Substance: TOCILIZUMAB
     Indication: COVID-19
     Dosage: FREQUENCY : ONCE;?
     Route: 042
     Dates: start: 20220104, end: 20220104
  2. KETOROLAC [Concomitant]
     Active Substance: KETOROLAC TROMETHAMINE
     Dates: start: 20220104, end: 20220104
  3. LORAZEPAM [Concomitant]
     Active Substance: LORAZEPAM
     Dates: start: 20211228
  4. METOPROLOL [Concomitant]
     Active Substance: METOPROLOL
     Dates: start: 20211228, end: 20211228
  5. MORPHINE [Concomitant]
     Active Substance: MORPHINE
     Dates: start: 20220105
  6. VITAMINS [Concomitant]
     Active Substance: VITAMINS
     Dates: start: 20220107
  7. PANTOPRAZOLE [Concomitant]
     Active Substance: PANTOPRAZOLE
     Dates: start: 20220107
  8. TRAZODONE [Concomitant]
     Active Substance: TRAZODONE HYDROCHLORIDE
     Dates: start: 20211227, end: 20220102
  9. THIAMINE [Concomitant]
     Active Substance: THIAMINE
     Dates: start: 20211228, end: 20220105
  10. Trace elements with selenium [Concomitant]
     Dates: start: 20220107
  11. ACETAMINOPHEN [Concomitant]
     Active Substance: ACETAMINOPHEN
     Dates: start: 20220105
  12. ALBUTEROL [Concomitant]
     Active Substance: ALBUTEROL
     Dates: start: 20211227, end: 20220104
  13. ASPIRIN [Concomitant]
     Active Substance: ASPIRIN
     Dates: start: 20220106, end: 20220106
  14. AZITHROMYCIN [Concomitant]
     Active Substance: AZITHROMYCIN
     Dates: start: 20211227, end: 20211227
  15. BENZONATATE [Concomitant]
     Active Substance: BENZONATATE
     Dates: start: 20211228, end: 20220105
  16. CALCIUM CARBONATE [Concomitant]
     Active Substance: CALCIUM CARBONATE
     Dates: start: 20220106, end: 20220106
  17. CEFTRIAXONE [Concomitant]
     Active Substance: CEFTRIAXONE
     Dates: start: 20211227, end: 20220102
  18. DEXAMETHASONE [Concomitant]
     Active Substance: DEXAMETHASONE
     Dates: start: 20211227
  19. DOXYCYCLINE [Concomitant]
     Active Substance: DOXYCYCLINE
     Dates: start: 20211227, end: 20220103
  20. ENOXAPARIN [Concomitant]
     Active Substance: ENOXAPARIN
     Dates: start: 20211228
  21. FOLIC ACID [Concomitant]
     Active Substance: FOLIC ACID
     Dates: start: 20211228, end: 20220105
  22. GUAIFENESIN [Concomitant]
     Active Substance: GUAIFENESIN
     Dates: start: 20211228, end: 20220105

REACTIONS (3)
  - Fibrin D dimer increased [None]
  - Embolism venous [None]
  - Coagulopathy [None]

NARRATIVE: CASE EVENT DATE: 20220108
